FAERS Safety Report 24450896 (Version 1)
Quarter: 2024Q4

REPORT INFORMATION
  Report Type: Report from Study
  Country: US (occurrence: US)
  Receive Date: 20241017
  Receipt Date: 20241017
  Transmission Date: 20250115
  Serious: Yes (Hospitalization)
  Sender: ALEXION PHARMACEUTICALS
  Company Number: US-AstraZeneca-CH-00724467A

PATIENT

DRUGS (4)
  1. BEVESPI AEROSPHERE [Suspect]
     Active Substance: FORMOTEROL FUMARATE\GLYCOPYRROLATE
     Indication: Product used for unknown indication
     Dosage: UNK
  2. BEVESPI AEROSPHERE [Suspect]
     Active Substance: FORMOTEROL FUMARATE\GLYCOPYRROLATE
     Dosage: UNK
  3. BEVESPI AEROSPHERE [Suspect]
     Active Substance: FORMOTEROL FUMARATE\GLYCOPYRROLATE
     Dosage: UNK
  4. BEVESPI AEROSPHERE [Suspect]
     Active Substance: FORMOTEROL FUMARATE\GLYCOPYRROLATE
     Dosage: UNK

REACTIONS (11)
  - Intentional dose omission [Unknown]
  - Depressed mood [Unknown]
  - Feeling of despair [Unknown]
  - Condition aggravated [Unknown]
  - Product dose omission issue [Unknown]
  - Fatigue [Unknown]
  - Weight decreased [Unknown]
  - Peripheral swelling [Unknown]
  - Disease complication [Unknown]
  - Anhedonia [Unknown]
  - Chronic obstructive pulmonary disease [Unknown]
